FAERS Safety Report 21268469 (Version 2)
Quarter: 2022Q3

REPORT INFORMATION
  Report Type: Spontaneous
  Country: TW (occurrence: TW)
  Receive Date: 20220830
  Receipt Date: 20220912
  Transmission Date: 20221027
  Serious: Yes (Other)
  Sender: FDA-Public Use
  Company Number: TW-WOCKHARDT BIO AG-2022WBA000112

PATIENT
  Age: 92 Year
  Sex: Female

DRUGS (4)
  1. METOCLOPRAMIDE [Suspect]
     Active Substance: METOCLOPRAMIDE
     Indication: Abdominal discomfort
     Dosage: 10 MILLIGRAM, TID FOR 3 DOSES
     Route: 048
  2. METOCLOPRAMIDE [Suspect]
     Active Substance: METOCLOPRAMIDE
     Indication: Abdominal discomfort
     Dosage: 10 MILLIGRAM, EVERY 8 HOURS FOR 3 DOSES
     Route: 042
  3. CISAPRIDE [Suspect]
     Active Substance: CISAPRIDE
     Indication: Product used for unknown indication
     Dosage: 10 MILLIGRAM, TID
     Route: 048
  4. ERYTHROMYCIN [Suspect]
     Active Substance: ERYTHROMYCIN
     Indication: Product used for unknown indication
     Dosage: 500 MILLIGRAM, TID
     Route: 048

REACTIONS (2)
  - Torsade de pointes [Recovered/Resolved]
  - Seizure [Unknown]
